FAERS Safety Report 19881767 (Version 1)
Quarter: 2021Q3

REPORT INFORMATION
  Report Type: Spontaneous
  Country: US (occurrence: US)
  Receive Date: 20210925
  Receipt Date: 20210925
  Transmission Date: 20211014
  Serious: Yes (Other)
  Sender: FDA-Public Use
  Company Number: NVSC2021US216681

PATIENT

DRUGS (3)
  1. RANITIDINE. [Suspect]
     Active Substance: RANITIDINE
     Indication: PRODUCT USED FOR UNKNOWN INDICATION
     Dosage: UNK
     Route: 065
     Dates: start: 2009, end: 2019
  2. RANITIDINE. [Suspect]
     Active Substance: RANITIDINE
     Indication: PRODUCT USED FOR UNKNOWN INDICATION
     Dosage: UNK
     Route: 065
     Dates: start: 2009, end: 2019
  3. ZANTAC [Suspect]
     Active Substance: RANITIDINE HYDROCHLORIDE
     Indication: PRODUCT USED FOR UNKNOWN INDICATION
     Dosage: UNK
     Route: 065
     Dates: start: 2009, end: 2019

REACTIONS (9)
  - Injury [Unknown]
  - Depression [Unknown]
  - Pain [Unknown]
  - Anxiety [Unknown]
  - Anhedonia [Unknown]
  - Breast cancer [Unknown]
  - Emotional distress [Unknown]
  - Insomnia [Unknown]
  - Irritability [Unknown]

NARRATIVE: CASE EVENT DATE: 201808
